FAERS Safety Report 6185180-2 (Version None)
Quarter: 2009Q2

REPORT INFORMATION
  Report Type: 
  Country: None (occurrence: None)
  Receive Date: 20090511
  Receipt Date: 20090506
  Transmission Date: 20091009
  Serious: Yes (Hospitalization)
  Sender: FDA-Public Use
  Company Number: US-WYE-H09241609

PATIENT
  Age: 74 Year
  Sex: Female

DRUGS (19)
  1. TEMSIROLIMUS [Suspect]
     Indication: MULTIPLE MYELOMA
     Dosage: 15 MG DAYS 1,8,15,22,29 EVERY 35 DAYS
     Dates: start: 20090220, end: 20090417
  2. TEMSIROLIMUS [Suspect]
     Dates: start: 20090206, end: 20090206
  3. ATIVAN [Concomitant]
  4. COMPAZINE [Concomitant]
  5. GLYBURIDE [Concomitant]
  6. LISINOPRIL [Concomitant]
  7. METOPROLOL [Concomitant]
  8. MIRALAX [Concomitant]
  9. NEUPOGEN [Concomitant]
  10. NORVASC [Concomitant]
  11. OXYCODONE HCL [Concomitant]
  12. OXYCONTIN [Concomitant]
  13. PERIDEX [Concomitant]
  14. VALTREX [Concomitant]
  15. TYLENOL [Concomitant]
  16. AZITHROMYCIN [Concomitant]
  17. ZOLOFT [Concomitant]
  18. BORTEZOMIB [Suspect]
     Indication: MULTIPLE MYELOMA
     Dosage: 1.3 MG/M^2 DAYS 1,8,15,22 EVERY 35 DAYS
     Dates: start: 20090220, end: 20090410
  19. BORTEZOMIB [Suspect]
     Dates: start: 20090206, end: 20090206

REACTIONS (2)
  - EPISTAXIS [None]
  - MALAISE [None]
